FAERS Safety Report 21567048 (Version 1)
Quarter: 2022Q4

REPORT INFORMATION
  Report Type: Spontaneous
  Country: US (occurrence: None)
  Receive Date: 20221107
  Receipt Date: 20221107
  Transmission Date: 20230112
  Serious: Yes (Life-Threatening, Hospitalization, Disabling, Other)
  Sender: FDA-Public Use
  Company Number: None

PATIENT
  Age: 86 Year
  Sex: Male
  Weight: 55.35 kg

DRUGS (5)
  1. RISPERIDONE [Suspect]
     Active Substance: RISPERIDONE
     Indication: Patient restraint
     Dosage: OTHER QUANTITY : 1 TABLET(S);?FREQUENCY : TWICE A DAY;?
     Route: 060
     Dates: start: 20221020, end: 20221027
  2. AMLODIPINE [Concomitant]
     Active Substance: AMLODIPINE BESYLATE
  3. ACYCLOVIR [Concomitant]
     Active Substance: ACYCLOVIR
  4. Tim lol eyedrops [Concomitant]
  5. LATANOPROST [Concomitant]
     Active Substance: LATANOPROST

REACTIONS (6)
  - Toxic encephalopathy [None]
  - Eye discharge [None]
  - Oral pain [None]
  - Weight decreased [None]
  - Paralysis [None]
  - Product prescribing issue [None]

NARRATIVE: CASE EVENT DATE: 20221020
